FAERS Safety Report 4989286-2 (Version None)
Quarter: 2006Q2

REPORT INFORMATION
  Report Type: 
  Country: None (occurrence: None)
  Receive Date: 20060425
  Receipt Date: 20060413
  Transmission Date: 20061013
  Serious: Yes (Life-Threatening, Hospitalization)
  Sender: FDA-Public Use
  Company Number: 2005061516

PATIENT
  Age: 51 Year
  Sex: Male

DRUGS (5)
  1. SERTRALINE [Suspect]
     Indication: ILL-DEFINED DISORDER
  2. MIRTAZAPINE [Concomitant]
  3. TRAMADOL HCL [Concomitant]
  4. LISINOPRIL [Concomitant]
  5. VALPROIC ACID [Concomitant]

REACTIONS (35)
  - ABDOMINAL PAIN UPPER [None]
  - AGITATION [None]
  - BLOOD CREATINE PHOSPHOKINASE INCREASED [None]
  - BLOOD POTASSIUM INCREASED [None]
  - BLOOD PRESSURE SYSTOLIC INCREASED [None]
  - BREATH SOUNDS ABNORMAL [None]
  - CARBON DIOXIDE DECREASED [None]
  - CHRONIC OBSTRUCTIVE PULMONARY DISEASE [None]
  - CONDITION AGGRAVATED [None]
  - CONFUSIONAL STATE [None]
  - CREPITATIONS [None]
  - DISCOMFORT [None]
  - DRUG LEVEL INCREASED [None]
  - DRUG TOXICITY [None]
  - DYSPNOEA [None]
  - FEELING ABNORMAL [None]
  - FLUSHING [None]
  - HAEMATOCRIT DECREASED [None]
  - HAEMODYNAMIC INSTABILITY [None]
  - HYPOTENSION [None]
  - INFECTION [None]
  - MYOCLONUS [None]
  - NEUROLOGICAL SYMPTOM [None]
  - PALPITATIONS [None]
  - PYREXIA [None]
  - RED BLOOD CELLS URINE POSITIVE [None]
  - RENAL FAILURE ACUTE [None]
  - RESPIRATORY DISTRESS [None]
  - RESPIRATORY RATE INCREASED [None]
  - SEROTONIN SYNDROME [None]
  - TACHYCARDIA [None]
  - WEIGHT INCREASED [None]
  - WHEEZING [None]
  - WHITE BLOOD CELL COUNT INCREASED [None]
  - WHITE BLOOD CELLS URINE POSITIVE [None]
